FAERS Safety Report 24375964 (Version 3)
Quarter: 2025Q1

REPORT INFORMATION
  Report Type: Spontaneous
  Country: CA (occurrence: CA)
  Receive Date: 20240928
  Receipt Date: 20250303
  Transmission Date: 20250408
  Serious: Yes (Death, Life-Threatening, Hospitalization, Disabling, Congenital Anomaly, Other)
  Sender: TAKEDA
  Company Number: CA-TAKEDA-2024TUS081656

PATIENT
  Age: 43 Year
  Sex: Female
  Weight: 68 kg

DRUGS (61)
  1. HUMAN C1-ESTERASE INHIBITOR [Suspect]
     Active Substance: HUMAN C1-ESTERASE INHIBITOR
     Indication: Product used for unknown indication
  2. HUMAN C1-ESTERASE INHIBITOR [Suspect]
     Active Substance: HUMAN C1-ESTERASE INHIBITOR
  3. HUMAN C1-ESTERASE INHIBITOR [Suspect]
     Active Substance: HUMAN C1-ESTERASE INHIBITOR
  4. HUMAN IMMUNOGLOBULIN G [Suspect]
     Active Substance: HUMAN IMMUNOGLOBULIN G
     Indication: Product used for unknown indication
  5. HUMAN IMMUNOGLOBULIN G [Suspect]
     Active Substance: HUMAN IMMUNOGLOBULIN G
  6. HUMAN IMMUNOGLOBULIN G [Suspect]
     Active Substance: HUMAN IMMUNOGLOBULIN G
     Indication: Product used for unknown indication
     Dosage: 40 MILLIGRAM, 1/WEEK
  7. HUMAN IMMUNOGLOBULIN G [Suspect]
     Active Substance: HUMAN IMMUNOGLOBULIN G
     Dosage: 40 MILLIGRAM, 2/WEEK
  8. HUMAN IMMUNOGLOBULIN G [Suspect]
     Active Substance: HUMAN IMMUNOGLOBULIN G
  9. HUMAN IMMUNOGLOBULIN G [Suspect]
     Active Substance: HUMAN IMMUNOGLOBULIN G
  10. CANDESARTAN [Suspect]
     Active Substance: CANDESARTAN
     Indication: Migraine
  11. METHOTREXATE [Suspect]
     Active Substance: METHOTREXATE
     Indication: Rheumatoid arthritis
     Dosage: 25 MILLIGRAM, 1/WEEK
  12. METHOTREXATE [Suspect]
     Active Substance: METHOTREXATE
     Dosage: 25 MILLIGRAM, BID
  13. METHOTREXATE [Suspect]
     Active Substance: METHOTREXATE
     Dosage: 20 MILLIGRAM, QD
  14. METHOTREXATE [Suspect]
     Active Substance: METHOTREXATE
  15. METHOTREXATE [Suspect]
     Active Substance: METHOTREXATE
  16. METHOTREXATE [Suspect]
     Active Substance: METHOTREXATE
  17. METHOTREXATE [Suspect]
     Active Substance: METHOTREXATE
     Dosage: 25 MILLIGRAM, QD
  18. METHOTREXATE [Suspect]
     Active Substance: METHOTREXATE
     Indication: Product used for unknown indication
  19. METHOTREXATE [Suspect]
     Active Substance: METHOTREXATE
     Indication: Rheumatoid arthritis
     Dosage: 25 MILLIGRAM, 1/WEEK
  20. METHOTREXATE [Suspect]
     Active Substance: METHOTREXATE
     Dosage: 20 MILLIGRAM, 1/WEEK
  21. METHOTREXATE [Suspect]
     Active Substance: METHOTREXATE
     Dosage: 25 MILLIGRAM, QD
  22. METHOTREXATE [Suspect]
     Active Substance: METHOTREXATE
  23. METHOTREXATE [Suspect]
     Active Substance: METHOTREXATE
     Dosage: 15 MILLIGRAM, QD
  24. METHOTREXATE [Suspect]
     Active Substance: METHOTREXATE
  25. METHOTREXATE [Suspect]
     Active Substance: METHOTREXATE
  26. METHOTREXATE [Suspect]
     Active Substance: METHOTREXATE
     Dosage: 20 MILLIGRAM, QD
  27. METHOTREXATE [Suspect]
     Active Substance: METHOTREXATE
     Dosage: 25 MILLIGRAM, 1/WEEK
  28. METHOTREXATE [Suspect]
     Active Substance: METHOTREXATE
  29. METHOTREXATE [Suspect]
     Active Substance: METHOTREXATE
  30. METHOTREXATE [Suspect]
     Active Substance: METHOTREXATE
     Dosage: 20 MILLIGRAM, 1/WEEK
  31. METHOTREXATE [Suspect]
     Active Substance: METHOTREXATE
  32. METHOTREXATE [Suspect]
     Active Substance: METHOTREXATE
  33. METHOTREXATE [Suspect]
     Active Substance: METHOTREXATE
     Dosage: 25 MILLIGRAM, QD
  34. METHOTREXATE [Suspect]
     Active Substance: METHOTREXATE
     Dosage: 25 MILLIGRAM, QD
  35. METHOTREXATE [Suspect]
     Active Substance: METHOTREXATE
  36. METHOTREXATE [Suspect]
     Active Substance: METHOTREXATE
     Dosage: 10 MILLIGRAM, QD
  37. METHOTREXATE [Suspect]
     Active Substance: METHOTREXATE
  38. METHOTREXATE [Suspect]
     Active Substance: METHOTREXATE
  39. METHOTREXATE [Suspect]
     Active Substance: METHOTREXATE
  40. METHOTREXATE [Suspect]
     Active Substance: METHOTREXATE
  41. METHOTREXATE [Suspect]
     Active Substance: METHOTREXATE
  42. METHOTREXATE [Suspect]
     Active Substance: METHOTREXATE
  43. METHOTREXATE [Suspect]
     Active Substance: METHOTREXATE
  44. METHOTREXATE [Suspect]
     Active Substance: METHOTREXATE
  45. METHOTREXATE [Suspect]
     Active Substance: METHOTREXATE
     Indication: Rheumatoid arthritis
  46. CALCIUM [Suspect]
     Active Substance: CALCIUM
     Indication: Product used for unknown indication
  47. CALCIUM CARBONATE [Suspect]
     Active Substance: CALCIUM CARBONATE
     Indication: Product used for unknown indication
  48. CALCIUM ASCORBATE [Suspect]
     Active Substance: CALCIUM ASCORBATE
     Indication: Product used for unknown indication
  49. HYDROCORTISONE BUTYRATE [Suspect]
     Active Substance: HYDROCORTISONE BUTYRATE
     Indication: Rheumatoid arthritis
  50. DEXAMETHASONE [Suspect]
     Active Substance: DEXAMETHASONE
     Indication: Product used for unknown indication
     Dosage: 25 MILLIGRAM, QD
  51. DEXAMETHASONE [Suspect]
     Active Substance: DEXAMETHASONE
  52. DEXAMETHASONE [Suspect]
     Active Substance: DEXAMETHASONE
     Dosage: 1 GRAM, BID
  53. DEXAMETHASONE [Suspect]
     Active Substance: DEXAMETHASONE
     Dosage: 15 MILLIGRAM, QD
  54. RAMIPRIL [Suspect]
     Active Substance: RAMIPRIL
     Indication: Rheumatoid arthritis
  55. RITUXIMAB [Suspect]
     Active Substance: RITUXIMAB
     Indication: Rheumatoid arthritis
  56. RITUXIMAB [Suspect]
     Active Substance: RITUXIMAB
  57. ACETAMINOPHEN\CODEINE PHOSPHATE [Suspect]
     Active Substance: ACETAMINOPHEN\CODEINE PHOSPHATE
     Indication: Product used for unknown indication
  58. ACETAMINOPHEN\PROPOXYPHENE [Suspect]
     Active Substance: ACETAMINOPHEN\PROPOXYPHENE
     Indication: Product used for unknown indication
  59. ACETAMINOPHEN [Suspect]
     Active Substance: ACETAMINOPHEN
     Indication: Product used for unknown indication
  60. PREDNISONE [Suspect]
     Active Substance: PREDNISONE
     Indication: Rheumatoid arthritis
  61. VITAMIN C [Suspect]
     Active Substance: ASCORBIC ACID
     Indication: Product used for unknown indication

REACTIONS (39)
  - Adrenal insufficiency [Fatal]
  - Contraindicated product administered [Not Recovered/Not Resolved]
  - Drug tolerance [Fatal]
  - Exposure during pregnancy [Unknown]
  - Drug hypersensitivity [Fatal]
  - Hypokalaemia [Fatal]
  - Immunodeficiency [Fatal]
  - Intentional product use issue [Unknown]
  - Joint destruction [Fatal]
  - Loss of consciousness [Fatal]
  - Maternal exposure during pregnancy [Not Recovered/Not Resolved]
  - Off label use [Unknown]
  - Polyarthritis [Fatal]
  - Product use in unapproved indication [Unknown]
  - Therapeutic product effect decreased [Unknown]
  - Therapy non-responder [Unknown]
  - Adverse drug reaction [Not Recovered/Not Resolved]
  - Hypersensitivity [Not Recovered/Not Resolved]
  - Drug ineffective [Not Recovered/Not Resolved]
  - Malaise [Not Recovered/Not Resolved]
  - Musculoskeletal stiffness [Not Recovered/Not Resolved]
  - Nausea [Not Recovered/Not Resolved]
  - Oedema [Not Recovered/Not Resolved]
  - Prescribed overdose [Not Recovered/Not Resolved]
  - Product use issue [Not Recovered/Not Resolved]
  - Psoriasis [Not Recovered/Not Resolved]
  - Pulmonary fibrosis [Not Recovered/Not Resolved]
  - Rheumatic fever [Not Recovered/Not Resolved]
  - Rheumatoid factor positive [Not Recovered/Not Resolved]
  - Sciatica [Not Recovered/Not Resolved]
  - Sinusitis [Not Recovered/Not Resolved]
  - Swollen joint count increased [Not Recovered/Not Resolved]
  - Abdominal pain [Not Recovered/Not Resolved]
  - Discomfort [Not Recovered/Not Resolved]
  - Drug intolerance [Not Recovered/Not Resolved]
  - Infection [Not Recovered/Not Resolved]
  - Injury [Not Recovered/Not Resolved]
  - Treatment failure [Not Recovered/Not Resolved]
  - Hypercholesterolaemia [Fatal]
